FAERS Safety Report 25106442 (Version 1)
Quarter: 2025Q1

REPORT INFORMATION
  Report Type: Spontaneous
  Country: US (occurrence: None)
  Receive Date: 20250321
  Receipt Date: 20250321
  Transmission Date: 20250408
  Serious: Yes (Other)
  Sender: FDA-CTU
  Company Number: None

PATIENT
  Age: 79 Year
  Sex: Female
  Weight: 63 kg

DRUGS (3)
  1. AMIVANTAMAB [Suspect]
     Active Substance: AMIVANTAMAB
     Indication: Lung adenocarcinoma
     Route: 042
     Dates: start: 20250204, end: 20250319
  2. CARBOPLATIN [Concomitant]
     Active Substance: CARBOPLATIN
     Dates: start: 20250204
  3. PEMETREXED [Suspect]
     Active Substance: PEMETREXED

REACTIONS (2)
  - Deep vein thrombosis [None]
  - Tachycardia [None]

NARRATIVE: CASE EVENT DATE: 20250318
